FAERS Safety Report 8570785-1 (Version None)
Quarter: 2012Q3

REPORT INFORMATION
  Report Type: 
  Country: None (occurrence: None)
  Receive Date: 20120806
  Receipt Date: 20120801
  Transmission Date: 20120928
  Serious: Yes (Life-Threatening, Hospitalization, Other)
  Sender: FDA-Public Use
  Company Number: HU-AMGEN-HUNSP2012047987

PATIENT
  Age: 70 Year
  Sex: Male

DRUGS (1)
  1. NPLATE [Suspect]
     Indication: PRODUCT USED FOR UNKNOWN INDICATION
     Dosage: UNK
     Dates: start: 20090101

REACTIONS (5)
  - HAEMORRHAGE [None]
  - PLATELET COUNT DECREASED [None]
  - GASTROINTESTINAL HAEMORRHAGE [None]
  - THERAPEUTIC RESPONSE DECREASED [None]
  - MOUTH HAEMORRHAGE [None]
